FAERS Safety Report 6394313-4 (Version None)
Quarter: 2009Q4

REPORT INFORMATION
  Report Type: 
  Country: None (occurrence: None)
  Receive Date: 20091006
  Receipt Date: 20090925
  Transmission Date: 20100525
  Serious: Yes (Hospitalization, Other)
  Sender: FDA-Public Use
  Company Number: 2009US003589

PATIENT
  Age: 81 Year
  Sex: Male

DRUGS (10)
  1. AMBISOME [Suspect]
     Indication: FUNGAL INFECTION
     Dosage: 200 MG, UID/QD, IV NOS
     Route: 042
     Dates: start: 20090821, end: 20090823
  2. VANCOMYCIN HYDROCHLORIDE [Suspect]
     Indication: STAPHYLOCOCCAL INFECTION
     Dosage: 1.5 G, UID/QD,; 1 G, UID/QD, IV NOS
     Route: 042
     Dates: start: 20090731, end: 20090823
  3. VANCOMYCIN HYDROCHLORIDE [Suspect]
     Indication: STAPHYLOCOCCAL INFECTION
     Dosage: 1.5 G, UID/QD,; 1 G, UID/QD, IV NOS
     Route: 042
     Dates: start: 20090724
  4. LOXONIN (LOXOPROFEN SODIUM) [Concomitant]
  5. SELBEX (TEPRENONE) [Concomitant]
  6. MINOPEN (MINOCYCLINE HYDROCHLORIDE) [Concomitant]
  7. CLINDAMYCIN PHOSPHATE [Concomitant]
  8. RISPERDAL [Concomitant]
  9. ROHYPNOL (FLUNITRAZEPAM) [Concomitant]
  10. FUNGIZONE [Concomitant]

REACTIONS (7)
  - ATELECTASIS [None]
  - CANDIDIASIS [None]
  - HYPOKALAEMIA [None]
  - PANCYTOPENIA [None]
  - PLEURAL EFFUSION [None]
  - PNEUMONIA [None]
  - RENAL IMPAIRMENT [None]
